FAERS Safety Report 4505108-8 (Version None)
Quarter: 2004Q4

REPORT INFORMATION
  Report Type: 
  Country: None (occurrence: None)
  Receive Date: 20041119
  Receipt Date: 20020924
  Transmission Date: 20050328
  Serious: Yes (Hospitalization)
  Sender: FDA-Public Use
  Company Number: JP-ABBOTT-02P-087-0201424-00

PATIENT
  Sex: Male

DRUGS (6)
  1. KALETRA [Suspect]
     Indication: HIV INFECTION
     Route: 048
     Dates: start: 20031202, end: 20031203
  2. NORVIR [Suspect]
     Indication: HIV INFECTION
     Route: 048
     Dates: start: 20010401, end: 20031202
  3. ZIDOVUDINE [Suspect]
     Indication: HIV INFECTION
     Route: 048
     Dates: start: 20010401, end: 20031203
  4. LAMIVUDINE [Suspect]
     Indication: HIV INFECTION
     Route: 048
     Dates: start: 20010401, end: 20031203
  5. INDINAVIR [Suspect]
     Indication: HIV INFECTION
     Route: 048
     Dates: start: 20010401, end: 20031202
  6. BACTRIM [Concomitant]
     Indication: INFECTION PROPHYLAXIS
     Route: 048
     Dates: start: 20040203

REACTIONS (9)
  - BACK PAIN [None]
  - BILIARY NEOPLASM [None]
  - BLOOD URIC ACID INCREASED [None]
  - CALCULUS URETERIC [None]
  - CALCULUS URINARY [None]
  - HAEMATURIA [None]
  - HYPERCHOLESTEROLAEMIA [None]
  - HYPERLIPIDAEMIA [None]
  - RENAL FAILURE ACUTE [None]
